FAERS Safety Report 7536453-X (Version None)
Quarter: 2011Q2

REPORT INFORMATION
  Report Type: 
  Country: None (occurrence: None)
  Receive Date: 20110524
  Receipt Date: 20110228
  Transmission Date: 20111010
  Serious: Yes (Other)
  Sender: FDA-Public Use
  Company Number: 028382

PATIENT

DRUGS (1)
  1. CIMZIA [Suspect]
     Dosage: (400MG SUBCUTANEOUS)
     Route: 058

REACTIONS (1)
  - DEMYELINATING POLYNEUROPATHY [None]
